FAERS Safety Report 6217097-9 (Version None)
Quarter: 2009Q2

REPORT INFORMATION
  Report Type: 
  Country: None (occurrence: None)
  Receive Date: 20090606
  Receipt Date: 20090525
  Transmission Date: 20091009
  Serious: Yes (Death)
  Sender: FDA-Public Use
  Company Number: NL-PFIZER INC-2008032522

PATIENT
  Age: 66 Year

DRUGS (7)
  1. SOMATROPIN [Suspect]
     Indication: HYPOPITUITARISM
     Dosage: 0.5 MG, 1X/DAY
     Route: 058
     Dates: start: 19960226, end: 20051001
  2. DESMOPRESSIN [Concomitant]
     Route: 048
     Dates: start: 19830614
  3. TESTOSTERONE [Concomitant]
     Route: 030
     Dates: start: 20021016
  4. LEVOTHYROXINE [Concomitant]
     Route: 048
     Dates: start: 19830614
  5. VITAMIN D [Concomitant]
     Route: 048
     Dates: start: 20010326
  6. ATORVASTATIN [Concomitant]
     Route: 048
     Dates: start: 20020209
  7. ALENDRONATE SODIUM [Concomitant]
     Route: 048
     Dates: start: 20010326

REACTIONS (1)
  - SUDDEN DEATH [None]
